FAERS Safety Report 8532655-4 (Version None)
Quarter: 2012Q3

REPORT INFORMATION
  Report Type: 
  Country: None (occurrence: None)
  Receive Date: 20120724
  Receipt Date: 20120714
  Transmission Date: 20120928
  Serious: Yes (Other)
  Sender: FDA-Public Use
  Company Number: CA-US-EMD SERONO, INC.-7147838

PATIENT
  Sex: Female

DRUGS (3)
  1. GONAL-F [Suspect]
     Indication: PRODUCT USED FOR UNKNOWN INDICATION
     Route: 058
     Dates: start: 20120629
  2. LUVERIS [Suspect]
     Indication: PRODUCT USED FOR UNKNOWN INDICATION
     Route: 058
     Dates: start: 20120629
  3. GONAL-F [Suspect]
     Dates: start: 20120713

REACTIONS (1)
  - VAGINAL HAEMORRHAGE [None]
